FAERS Safety Report 8353375-5 (Version None)
Quarter: 2012Q2

REPORT INFORMATION
  Report Type: 
  Country: None (occurrence: None)
  Receive Date: 20120511
  Receipt Date: 20120507
  Transmission Date: 20120825
  Serious: Yes (Hospitalization, Other)
  Sender: FDA-Public Use
  Company Number: US-SANOFI-AVENTIS-2012SA032425

PATIENT
  Age: 75 Year
  Sex: Female

DRUGS (26)
  1. DEPAKOTE [Suspect]
     Route: 065
     Dates: start: 19960101
  2. AMLODIPINE BESYLATE [Suspect]
     Route: 048
     Dates: start: 19970101
  3. XANAX [Suspect]
     Route: 065
  4. ATACAND [Suspect]
     Route: 065
  5. FUROSEMIDE [Suspect]
     Route: 065
  6. AMLODIPINE BESYLATE [Suspect]
     Route: 048
     Dates: start: 19950101
  7. LISINOPRIL [Suspect]
     Route: 065
  8. NEBIVOLOL [Suspect]
     Route: 065
  9. METOCLOPRAMIDE [Suspect]
     Route: 065
  10. PHENYTOIN [Suspect]
     Route: 065
     Dates: start: 19960101
  11. BACTRIM [Suspect]
     Route: 065
  12. ATACAND [Suspect]
     Route: 065
  13. VALSARTAN [Suspect]
     Route: 065
  14. CIPROFLOXACIN [Suspect]
     Route: 065
  15. AVAPRO [Suspect]
     Route: 065
  16. BENICAR [Suspect]
     Route: 048
     Dates: start: 20070101
  17. MACROBID [Suspect]
     Route: 065
  18. LIDOCAINE [Suspect]
     Route: 065
     Dates: start: 20100513, end: 20100513
  19. LEVOTHYROXINE SODIUM [Concomitant]
  20. FUROSEMIDE [Suspect]
     Route: 065
  21. AMLODIPINE BESYLATE [Suspect]
     Route: 048
     Dates: start: 20100101
  22. HYDROCHLOROTHIAZIDE [Suspect]
     Route: 065
  23. CARDIZEM [Suspect]
     Route: 065
  24. CLONIDINE [Concomitant]
     Indication: BLOOD PRESSURE ABNORMAL
     Route: 048
  25. LEVAQUIN [Suspect]
     Route: 065
  26. LOSARTAN POTASSIUM [Suspect]
     Route: 065

REACTIONS (12)
  - CYSTITIS [None]
  - PALPITATIONS [None]
  - ARTERIOSCLEROSIS CORONARY ARTERY [None]
  - BLOOD COUNT ABNORMAL [None]
  - ABDOMINAL DISTENSION [None]
  - CHOLECYSTECTOMY [None]
  - INGROWING NAIL [None]
  - LOSS OF CONSCIOUSNESS [None]
  - WEIGHT DECREASED [None]
  - BURNING SENSATION [None]
  - BLOOD PRESSURE INCREASED [None]
  - TOE OPERATION [None]
